FAERS Safety Report 10008106 (Version 1)
Quarter: 2014Q1

REPORT INFORMATION
  Report Type: Spontaneous
  Country: FR (occurrence: FR)
  Receive Date: 20140313
  Receipt Date: 20140313
  Transmission Date: 20141002
  Serious: Yes (Hospitalization)
  Sender: FDA-Public Use
  Company Number: FR-PFIZER INC-2014065919

PATIENT
  Age: 79 Year
  Sex: Male

DRUGS (16)
  1. TRIFLUCAN [Suspect]
     Dosage: 100 MG, 1X/DAY
     Route: 048
     Dates: start: 20140118, end: 20140127
  2. AMOXICILLIN PANPHARMA [Suspect]
     Indication: BACTERAEMIA
     Dosage: 6 G, DAILY
     Route: 042
     Dates: start: 20131209, end: 20131224
  3. AMOXICILLIN PANPHARMA [Suspect]
     Dosage: 3 G, 4X/DAY (EVERY 6 HOURS)
     Route: 042
     Dates: end: 20140126
  4. AMOXICILLIN PANPHARMA [Suspect]
     Dosage: 3 G, 3X/DAY (EVERY 8 HOURS)
     Route: 042
     Dates: start: 20140127, end: 20140129
  5. JANUVIA [Suspect]
     Indication: TYPE 2 DIABETES MELLITUS
     Dosage: 1 DF, 1X/DAY
     Route: 048
     Dates: end: 201312
  6. JANUVIA [Suspect]
     Dosage: 1 DF, 1X/DAY
     Route: 048
     Dates: start: 20131225, end: 20140129
  7. INEXIUM /01479302/ [Suspect]
     Dosage: 40 MG, 2X/DAY
     Route: 048
     Dates: end: 20140129
  8. RAMIPRIL [Concomitant]
  9. VERAPAMIL [Concomitant]
  10. DEROXAT [Concomitant]
  11. XANAX [Concomitant]
  12. KARDEGIC [Concomitant]
  13. LOXEN [Concomitant]
  14. LOVENOX [Concomitant]
  15. CALCIPARIN [Concomitant]
  16. DIFFU-K [Concomitant]

REACTIONS (1)
  - Renal failure acute [Recovered/Resolved]
